FAERS Safety Report 6656852-8 (Version None)
Quarter: 2010Q1

REPORT INFORMATION
  Report Type: 
  Country: None (occurrence: None)
  Receive Date: 20100325
  Receipt Date: 20100315
  Transmission Date: 20100710
  Serious: Yes (Other)
  Sender: FDA-Public Use
  Company Number: 236262K09USA

PATIENT
  Age: 53 Year
  Sex: Female
  Weight: 75 kg

DRUGS (7)
  1. REBIF [Suspect]
     Indication: MULTIPLE SCLEROSIS
     Dosage: 22 MCG, 3 IN 1 WEEKS, SUBCUTANEOUS
     Route: 058
     Dates: start: 20040101, end: 20090329
  2. TOPAMAX [Concomitant]
  3. CYMBALTA [Concomitant]
  4. NEURONTIN [Concomitant]
  5. PROVIGIL [Concomitant]
  6. BACLOFEN [Concomitant]
  7. UNSPECIFIED DEPRESSION MEDICATION (ANTIDEPRESSANTS) [Concomitant]

REACTIONS (4)
  - ARTHROPATHY [None]
  - BONE DENSITY DECREASED [None]
  - NECROSIS [None]
  - OSTEOARTHRITIS [None]
